FAERS Safety Report 9228036 (Version 2)
Quarter: 2013Q3

REPORT INFORMATION
  Report Type: Spontaneous
  Country: US (occurrence: US)
  Receive Date: 20130412
  Receipt Date: 20130712
  Transmission Date: 20140515
  Serious: No
  Sender: FDA-Public Use
  Company Number: US-GLAXOSMITHKLINE-A1005898A

PATIENT
  Age: 75 Year
  Sex: Male

DRUGS (2)
  1. JALYN [Suspect]
     Indication: BENIGN PROSTATIC HYPERPLASIA
     Dosage: 1CAP AT NIGHT
     Route: 048
     Dates: start: 201211
  2. IBUPROFEN [Concomitant]

REACTIONS (4)
  - Dizziness [Unknown]
  - Pollakiuria [Unknown]
  - Drug ineffective [Unknown]
  - Product quality issue [Unknown]
